FAERS Safety Report 6770642-7 (Version None)
Quarter: 2010Q2

REPORT INFORMATION
  Report Type: 
  Country: None (occurrence: None)
  Receive Date: 20100520
  Receipt Date: 20091109
  Transmission Date: 20101027
  Serious: Yes (Other)
  Sender: FDA-Public Use
  Company Number: 2009274629

PATIENT
  Age: 56 Year
  Sex: Female
  Weight: 64 kg

DRUGS (8)
  1. PROVERA [Suspect]
     Indication: HORMONE REPLACEMENT THERAPY
     Dosage: 10 MG, ORAL
     Route: 048
     Dates: start: 19871201, end: 19880601
  2. PREMARIN [Suspect]
     Indication: HORMONE REPLACEMENT THERAPY
     Dosage: 0.625 MG
     Dates: start: 19871201, end: 19970901
  3. ASPIRIN [Concomitant]
  4. AVALIDE [Concomitant]
  5. GLUCOVANCE (GLIBENCLAIMIDE, METFORMIN HYDROXHLORIDE) [Concomitant]
  6. ACTOS [Concomitant]
  7. CRESTOR [Concomitant]
  8. LANTUS [Concomitant]

REACTIONS (1)
  - BREAST CANCER FEMALE [None]
